FAERS Safety Report 4967854-1 (Version None)
Quarter: 2006Q2

REPORT INFORMATION
  Report Type: 
  Country: None (occurrence: None)
  Receive Date: 20060407
  Receipt Date: 20060407
  Transmission Date: 20061013
  Serious: Yes (Other)
  Sender: FDA-Public Use
  Company Number: None

PATIENT
  Sex: Female
  Weight: 122.4712 kg

DRUGS (1)
  1. ZOCOR [Suspect]
     Indication: HYPERLIPIDAEMIA
     Dosage: 40 DAILY PO
     Route: 048
     Dates: start: 20050701, end: 20051201

REACTIONS (1)
  - MUSCLE SPASMS [None]
